FAERS Safety Report 7742161-2 (Version None)
Quarter: 2011Q3

REPORT INFORMATION
  Report Type: 
  Country: None (occurrence: None)
  Receive Date: 20110912
  Receipt Date: 20110907
  Transmission Date: 20111222
  Serious: Yes (Death, Hospitalization, Other)
  Sender: FDA-Public Use
  Company Number: PHFR2011GB04740

PATIENT
  Sex: Male

DRUGS (7)
  1. HYOSCINE HYDROBROMIDE [Concomitant]
     Indication: SALIVARY HYPERSECRETION
     Dosage: UNK
     Route: 048
     Dates: start: 20020101, end: 20110802
  2. DESMOPRESSIN [Concomitant]
     Indication: INCONTINENCE
     Dosage: 1 PUFF DAILY
     Dates: end: 20110802
  3. AMISULPRIDE [Suspect]
     Indication: SCHIZOPHRENIA
     Dosage: 800 MG, UNK
     Dates: start: 20030101, end: 20110802
  4. LANSOPRAZOLE [Concomitant]
     Indication: DYSPEPSIA
     Dosage: 15 MG, UNK
     Route: 048
     Dates: end: 20110802
  5. CLOZAPINE [Suspect]
     Dosage: 800 MG, DAILY
     Route: 048
     Dates: end: 20110802
  6. CLOZAPINE [Suspect]
     Indication: SCHIZOPHRENIA
     Dates: start: 19950703
  7. MAXEPA                                  /UNK/ [Concomitant]
     Indication: SCHIZOPHRENIA
     Dosage: 10 MG, UNK
     Route: 048
     Dates: start: 20100101, end: 20110802

REACTIONS (8)
  - INFECTION [None]
  - COUGH [None]
  - MULTI-ORGAN FAILURE [None]
  - URINARY TRACT OBSTRUCTION [None]
  - CIRCULATORY COLLAPSE [None]
  - PNEUMONIA [None]
  - WHEEZING [None]
  - HAEMORRHAGE [None]
